FAERS Safety Report 4837526-2 (Version None)
Quarter: 2005Q4

REPORT INFORMATION
  Report Type: 
  Country: None (occurrence: None)
  Receive Date: 20051128
  Receipt Date: 20051123
  Transmission Date: 20060501
  Serious: Yes (Death, Hospitalization)
  Sender: FDA-Public Use
  Company Number: DE-GLAXOSMITHKLINE-D0048090A

PATIENT
  Sex: Male

DRUGS (2)
  1. KIVEXA [Suspect]
     Indication: HIV INFECTION
     Route: 048
  2. HIV TREATMENTS (UNSPECIFIED) [Concomitant]
     Indication: HIV INFECTION
     Route: 065

REACTIONS (6)
  - BLISTER [None]
  - DEATH [None]
  - ERYTHEMA [None]
  - PAIN IN EXTREMITY [None]
  - RASH MACULAR [None]
  - RASH PUSTULAR [None]
